FAERS Safety Report 6869277-7 (Version None)
Quarter: 2010Q3

REPORT INFORMATION
  Report Type: 
  Country: None (occurrence: None)
  Receive Date: 20100722
  Receipt Date: 20080721
  Transmission Date: 20110219
  Serious: No
  Sender: FDA-Public Use
  Company Number: US-PFIZER INC-2008060671

PATIENT
  Sex: Female
  Weight: 50 kg

DRUGS (2)
  1. CHANTIX [Suspect]
     Indication: SMOKING CESSATION THERAPY
     Dates: start: 20080712
  2. ZOLOFT [Concomitant]
     Indication: DEPRESSION

REACTIONS (4)
  - ASTHENOPIA [None]
  - DYSGEUSIA [None]
  - FATIGUE [None]
  - SOMNOLENCE [None]
